FAERS Safety Report 10435133 (Version 1)
Quarter: 2014Q3

REPORT INFORMATION
  Report Type: Spontaneous
  Country: US (occurrence: None)
  Receive Date: 20140825
  Receipt Date: 20140825
  Transmission Date: 20150326
  Serious: Yes (Death)
  Sender: FDA-Public Use
  Company Number: None

PATIENT
  Age: 72 Year
  Sex: Male

DRUGS (6)
  1. AFINITOR [Suspect]
     Active Substance: EVEROLIMUS
     Indication: RENAL CANCER
     Route: 048
     Dates: start: 20140814, end: 20140821
  2. LISINOPRIL. [Concomitant]
     Active Substance: LISINOPRIL
  3. PEPCID [Concomitant]
     Active Substance: FAMOTIDINE
  4. METOPROLOL [Concomitant]
     Active Substance: METOPROLOL
  5. BUDESONIDE. [Concomitant]
     Active Substance: BUDESONIDE
  6. ZETIA [Concomitant]
     Active Substance: EZETIMIBE

REACTIONS (1)
  - Disease progression [None]

NARRATIVE: CASE EVENT DATE: 20140821
